FAERS Safety Report 18355530 (Version 1)
Quarter: 2020Q4

REPORT INFORMATION
  Report Type: Spontaneous
  Country: IN (occurrence: IN)
  Receive Date: 20201007
  Receipt Date: 20201007
  Transmission Date: 20210114
  Serious: Yes (Other)
  Sender: FDA-Public Use
  Company Number: IN-STRIDES ARCOLAB LIMITED-2020SP011809

PATIENT
  Age: 7 Decade
  Sex: Female

DRUGS (1)
  1. VANCOMYCIN [Suspect]
     Active Substance: VANCOMYCIN
     Indication: PROPHYLAXIS
     Dosage: 1 MILLIGRAM, TOTAL (INJECTION)
     Route: 031

REACTIONS (5)
  - Visual acuity reduced [Unknown]
  - Retinal vasculitis [Unknown]
  - Pupillary reflex impaired [Unknown]
  - Haemorrhagic vasculitis [Unknown]
  - Retinal vascular occlusion [Unknown]
